FAERS Safety Report 14765439 (Version 1)
Quarter: 2018Q2

REPORT INFORMATION
  Report Type: Spontaneous
  Country: US (occurrence: US)
  Receive Date: 20180416
  Receipt Date: 20180416
  Transmission Date: 20180711
  Serious: Yes (Other)
  Sender: FDA-Public Use
  Company Number: US-MYLANLABS-2018M1023988

PATIENT
  Sex: Male

DRUGS (1)
  1. FLUOROURACIL. [Suspect]
     Active Substance: FLUOROURACIL
     Indication: HORMONE-REFRACTORY PROSTATE CANCER
     Dosage: 200 MG/M2
     Route: 041

REACTIONS (2)
  - Pancytopenia [Unknown]
  - Drug resistance [Unknown]
